FAERS Safety Report 5471503-6 (Version None)
Quarter: 2007Q3

REPORT INFORMATION
  Report Type: 
  Country: None (occurrence: None)
  Receive Date: 20070928
  Receipt Date: 20061129
  Transmission Date: 20080115
  Serious: No
  Sender: FDA-Public Use
  Company Number: US-BRISTOL-MYERS SQUIBB COMPANY-13594544

PATIENT
  Age: 66 Year
  Sex: Female
  Weight: 87 kg

DRUGS (5)
  1. DEFINITY [Suspect]
     Indication: ECHOCARDIOGRAM
  2. BUPROPION HCL [Concomitant]
  3. LISINOPRIL [Concomitant]
  4. PRILOSEC [Concomitant]
  5. ATENOLOL [Concomitant]

REACTIONS (1)
  - BACK PAIN [None]
